FAERS Safety Report 10465562 (Version 1)
Quarter: 2014Q3

REPORT INFORMATION
  Report Type: Spontaneous
  Country: US (occurrence: US)
  Receive Date: 20140920
  Receipt Date: 20140920
  Transmission Date: 20150326
  Serious: Yes (Hospitalization, Other)
  Sender: FDA-Public Use
  Company Number: US-SUN PHARMACEUTICAL INDUSTRIES LTD-2014SUN02076

PATIENT

DRUGS (1)
  1. ALPRAZOLAM TABS C-IV 0.5MG [Suspect]
     Active Substance: ALPRAZOLAM
     Indication: PRODUCT USED FOR UNKNOWN INDICATION
     Dosage: 10-20 MG/DAY FOR LAST 3 MONTHS
     Route: 065

REACTIONS (4)
  - Premature rupture of membranes [Recovered/Resolved]
  - Exposure during pregnancy [None]
  - Drug withdrawal syndrome [Recovering/Resolving]
  - Pregnancy [Recovered/Resolved]
